FAERS Safety Report 13380463 (Version 1)
Quarter: 2017Q1

REPORT INFORMATION
  Report Type: Spontaneous
  Country: US (occurrence: US)
  Receive Date: 20170329
  Receipt Date: 20170329
  Transmission Date: 20170429
  Serious: Yes (Other)
  Sender: FDA-Public Use
  Company Number: US-ACS-000563

PATIENT
  Age: 70 Year
  Sex: Male
  Weight: 54.47 kg

DRUGS (14)
  1. CEFAZOLIN  FOR INJECTION, 1G [Suspect]
     Active Substance: CEFAZOLIN
     Indication: BACTERAEMIA
     Route: 041
     Dates: start: 20170228, end: 20170308
  2. POTASSIUM CHLORIDE. [Concomitant]
     Active Substance: POTASSIUM CHLORIDE
     Route: 065
  3. ISOVUE [Concomitant]
     Active Substance: IOPAMIDOL
     Route: 065
  4. PROCHLORPERAZINE. [Concomitant]
     Active Substance: PROCHLORPERAZINE
     Route: 065
  5. GASTROGRAFIN [Concomitant]
     Active Substance: DIATRIZOATE MEGLUMINE\DIATRIZOATE SODIUM
     Route: 065
  6. ONDASETRON [Concomitant]
     Active Substance: ONDANSETRON
     Route: 065
  7. INDOMETHACIN. [Concomitant]
     Active Substance: INDOMETHACIN
     Route: 065
  8. PANTOPRAZOLE [Concomitant]
     Active Substance: PANTOPRAZOLE SODIUM
     Route: 065
  9. ACETOMINOPHEN [Concomitant]
     Route: 065
  10. MAGNESIUM SULPHATE [Concomitant]
     Active Substance: MAGNESIUM SULFATE
     Route: 065
  11. PROHANCE [Concomitant]
     Active Substance: GADOTERIDOL
     Route: 065
  12. OMEPRAZOLE. [Concomitant]
     Active Substance: OMEPRAZOLE
     Route: 065
  13. SENNA DOCUSATE [Concomitant]
     Route: 065
  14. FUROSEMIDE. [Concomitant]
     Active Substance: FUROSEMIDE
     Route: 065

REACTIONS (2)
  - Off label use [Unknown]
  - Drug ineffective [Recovering/Resolving]
